FAERS Safety Report 15154987 (Version 3)
Quarter: 2019Q3

REPORT INFORMATION
  Report Type: Spontaneous
  Country: US (occurrence: US)
  Receive Date: 20180717
  Receipt Date: 20190820
  Transmission Date: 20191004
  Serious: Yes (Other)
  Sender: FDA-Public Use
  Company Number: US-009507513-1710USA007364

PATIENT
  Sex: Male

DRUGS (3)
  1. STERILE DILUENT (WATER) [Suspect]
     Active Substance: WATER
     Dosage: UNK
     Route: 058
     Dates: start: 20120604
  2. ZOSTAVAX [Suspect]
     Active Substance: VARICELLA-ZOSTER VIRUS STRAIN OKA/MERCK LIVE ANTIGEN
     Indication: PROPHYLAXIS
     Dosage: .65 MILLILITER
     Route: 058
     Dates: start: 20120604, end: 20120604
  3. METOPROLOL. [Concomitant]
     Active Substance: METOPROLOL
     Indication: HYPERTENSION
     Dosage: 50 MG, 2X DAY
     Dates: start: 2010

REACTIONS (12)
  - Bowen^s disease [Unknown]
  - Bowen^s disease [Unknown]
  - Squamous cell carcinoma [Unknown]
  - Hypertension [Unknown]
  - Transient acantholytic dermatosis [Unknown]
  - Basal cell carcinoma [Unknown]
  - Vaccination failure [Unknown]
  - Varicella virus test positive [Unknown]
  - Bowen^s disease [Unknown]
  - Squamous cell carcinoma [Unknown]
  - Basal cell carcinoma [Unknown]
  - Ophthalmic herpes zoster [Unknown]

NARRATIVE: CASE EVENT DATE: 20130802
